FAERS Safety Report 25773250 (Version 3)
Quarter: 2025Q3

REPORT INFORMATION
  Report Type: Spontaneous
  Country: US (occurrence: US)
  Receive Date: 20250908
  Receipt Date: 20250916
  Transmission Date: 20251020
  Serious: No
  Sender: PFIZER
  Company Number: US-PFIZER INC-202500174465

PATIENT
  Age: 14 Year
  Sex: Female
  Weight: 43.09 kg

DRUGS (1)
  1. GENOTROPIN [Suspect]
     Active Substance: SOMATROPIN
     Indication: Blood growth hormone abnormal
     Dosage: 3.2 (UNKNOWN UNIT), 1X/DAY
     Dates: start: 202411

REACTIONS (6)
  - Injection site pain [Unknown]
  - Device delivery system issue [Unknown]
  - Device mechanical issue [Unknown]
  - Device information output issue [Unknown]
  - Device defective [Unknown]
  - Drug dose omission by device [Unknown]
